FAERS Safety Report 24663684 (Version 1)
Quarter: 2024Q4

REPORT INFORMATION
  Report Type: Spontaneous
  Country: JP (occurrence: JP)
  Receive Date: 20241126
  Receipt Date: 20241126
  Transmission Date: 20250114
  Serious: Yes (Hospitalization)
  Sender: STRIDES
  Company Number: JP-STRIDES ARCOLAB LIMITED-2024SP015203

PATIENT
  Age: 42 Year
  Sex: Female

DRUGS (8)
  1. OLANZAPINE [Suspect]
     Active Substance: OLANZAPINE
     Indication: Product used for unknown indication
     Dosage: 50 MILLIGRAM (20 TABLETS)
     Route: 048
  2. OLANZAPINE [Suspect]
     Active Substance: OLANZAPINE
     Dosage: 20 MILLIGRAM, QD
     Route: 065
  3. VALPROIC ACID [Suspect]
     Active Substance: VALPROIC ACID
     Indication: Depression
     Dosage: 1 TABLETS
     Route: 065
  4. VALPROIC ACID [Suspect]
     Active Substance: VALPROIC ACID
     Dosage: 35600 MILLIGRAM (178 TABLETS)
     Route: 048
  5. NITRAZEPAM [Suspect]
     Active Substance: NITRAZEPAM
     Indication: Depression
     Dosage: 2 TABLETS
     Route: 065
  6. NITRAZEPAM [Suspect]
     Active Substance: NITRAZEPAM
     Dosage: 600 MILLIGRAM (120 TABLETS)
     Route: 048
  7. CHLORPROMAZINE HYDROCHLORIDE [Concomitant]
     Active Substance: CHLORPROMAZINE HYDROCHLORIDE
     Indication: Depression
     Dosage: 2 TABLETS
     Route: 065
  8. FLUNITRAZEPAM [Concomitant]
     Active Substance: FLUNITRAZEPAM
     Indication: Depression
     Dosage: 2 TABLETS
     Route: 065

REACTIONS (6)
  - Respiratory acidosis [Unknown]
  - Unresponsive to stimuli [Recovered/Resolved]
  - Hypoxia [Unknown]
  - Hypotension [Unknown]
  - Altered state of consciousness [Recovered/Resolved]
  - Intentional overdose [Unknown]
